FAERS Safety Report 5570509-6 (Version None)
Quarter: 2007Q4

REPORT INFORMATION
  Report Type: 
  Country: None (occurrence: None)
  Receive Date: 20071221
  Receipt Date: 20071116
  Transmission Date: 20080405
  Serious: No
  Sender: FDA-Public Use
  Company Number: US-BRISTOL-MYERS SQUIBB COMPANY-13986237

PATIENT
  Age: 69 Year
  Sex: Female
  Weight: 68 kg

DRUGS (10)
  1. ORENCIA [Suspect]
     Indication: RHEUMATOID ARTHRITIS
     Dosage: RECEIVED APPROX 67-75% OF INFUSION.
     Route: 042
  2. METHOTREXATE [Concomitant]
  3. LISINOPRIL [Concomitant]
  4. FOLIC ACID [Concomitant]
  5. OXYCODONE HCL [Concomitant]
  6. POTASSIUM CHLORIDE [Concomitant]
  7. LIPITOR [Concomitant]
  8. ASACOL [Concomitant]
  9. TYLENOL [Concomitant]
  10. CLARITIN [Concomitant]

REACTIONS (3)
  - EYE PRURITUS [None]
  - PHARYNGEAL OEDEMA [None]
  - THROAT IRRITATION [None]
